FAERS Safety Report 9521515 (Version 3)
Quarter: 2014Q2

REPORT INFORMATION
  Report Type: Spontaneous
  Country: CN (occurrence: None)
  Receive Date: 20130911
  Receipt Date: 20140521
  Transmission Date: 20141212
  Serious: Yes (Other)
  Sender: FDA-Public Use
  Company Number: VAL_02720_2013

PATIENT
  Age: 58 Year
  Sex: Female

DRUGS (2)
  1. LOTENSIN [Suspect]
     Indication: PRODUCT USED FOR UNKNOWN INDICATION
     Dosage: (DF)
  2. EXFORGE [Suspect]
     Indication: HYPERTENSION
     Route: 048
     Dates: start: 201308

REACTIONS (3)
  - Drug ineffective [None]
  - Oedema peripheral [None]
  - Blood pressure increased [None]
